FAERS Safety Report 10593887 (Version 1)
Quarter: 2014Q4

REPORT INFORMATION
  Report Type: Spontaneous
  Country: GB (occurrence: GB)
  Receive Date: 20141119
  Receipt Date: 20141119
  Transmission Date: 20150529
  Serious: Yes (Hospitalization)
  Sender: FDA-Public Use
  Company Number: GB-SA-2014SA156847

PATIENT
  Age: 35 Year
  Sex: Female

DRUGS (2)
  1. CAPECITABINE. [Suspect]
     Active Substance: CAPECITABINE
     Indication: COLON CANCER
     Route: 048
  2. OXALIPLATIN. [Suspect]
     Active Substance: OXALIPLATIN
     Indication: COLON CANCER
     Route: 042

REACTIONS (8)
  - Chest pain [Recovered/Resolved]
  - Electrocardiogram ST segment elevation [Recovering/Resolving]
  - Coronary artery thrombosis [Recovering/Resolving]
  - Acute coronary syndrome [Recovering/Resolving]
  - Arteriospasm coronary [Recovered/Resolved]
  - Troponin increased [Recovering/Resolving]
  - Acute myocardial infarction [Recovering/Resolving]
  - Electrocardiogram T wave abnormal [Recovering/Resolving]
